FAERS Safety Report 7318727-0 (Version None)
Quarter: 2011Q1

REPORT INFORMATION
  Report Type: 
  Country: None (occurrence: None)
  Receive Date: 20110228
  Receipt Date: 20100419
  Transmission Date: 20110831
  Serious: No
  Sender: FDA-Public Use
  Company Number: A0839967A

PATIENT
  Age: 16 Year
  Sex: Female

DRUGS (4)
  1. EXCEDRIN (MIGRAINE) [Suspect]
  2. SUMATRIPTAN SUCCINATE [Suspect]
     Dosage: 6MG UNKNOWN
     Route: 042
  3. IMITREX [Suspect]
     Route: 042
  4. AMITRIPTYLINE HCL [Concomitant]
     Indication: MIGRAINE PROPHYLAXIS
     Dosage: 40MG AT NIGHT

REACTIONS (3)
  - PRODUCT QUALITY ISSUE [None]
  - HEADACHE [None]
  - DRUG INEFFECTIVE [None]
